FAERS Safety Report 9386639 (Version 1)
Quarter: 2013Q3

REPORT INFORMATION
  Report Type: Spontaneous
  Country: US (occurrence: None)
  Receive Date: 20130703
  Receipt Date: 20130703
  Transmission Date: 20140515
  Serious: Yes (Hospitalization)
  Sender: FDA-Public Use
  Company Number: None

PATIENT
  Age: 46 Year
  Sex: Female
  Weight: 63 kg

DRUGS (1)
  1. NUVARING [Suspect]
     Indication: CONTRACEPTION
     Dosage: ONE VAGINAL RING 3 WK ON AND 1 OFF VAG
     Route: 067

REACTIONS (3)
  - Syncope [None]
  - Pulmonary embolism [None]
  - Deep vein thrombosis [None]
